FAERS Safety Report 17155743 (Version 3)
Quarter: 2020Q1

REPORT INFORMATION
  Report Type: Spontaneous
  Country: GB (occurrence: GB)
  Receive Date: 20191215
  Receipt Date: 20200219
  Transmission Date: 20200409
  Serious: Yes (Other)
  Sender: FDA-Public Use
  Company Number: GB-SA-2019SA278302

PATIENT
  Age: 38 Year
  Sex: Female

DRUGS (1)
  1. LEMTRADA [Suspect]
     Active Substance: ALEMTUZUMAB
     Indication: MULTIPLE SCLEROSIS
     Dosage: 12 MG
     Route: 041
     Dates: start: 20190430

REACTIONS (13)
  - Intervertebral disc protrusion [Not Recovered/Not Resolved]
  - Sciatica [Not Recovered/Not Resolved]
  - Blood urine present [Unknown]
  - Nasopharyngitis [Not Recovered/Not Resolved]
  - Urinary incontinence [Not Recovered/Not Resolved]
  - Spinal pain [Not Recovered/Not Resolved]
  - Pain [Not Recovered/Not Resolved]
  - Hemiparesis [Unknown]
  - Respiratory tract congestion [Not Recovered/Not Resolved]
  - Cough [Not Recovered/Not Resolved]
  - Pain [Unknown]
  - Body temperature increased [Not Recovered/Not Resolved]
  - Oropharyngeal pain [Not Recovered/Not Resolved]

NARRATIVE: CASE EVENT DATE: 2019
